FAERS Safety Report 9042707 (Version 1)
Quarter: 2013Q1

REPORT INFORMATION
  Report Type: Report from Study
  Country: US (occurrence: US)
  Receive Date: 20130129
  Receipt Date: 20130129
  Transmission Date: 20140127
  Serious: No
  Sender: FDA-Public Use
  Company Number: US-ABBOTT-12P-163-0905644-00

PATIENT
  Age: 51 Year
  Sex: Male

DRUGS (11)
  1. HUMIRA 40 MG/0.8 ML PEN [Suspect]
     Indication: PSORIASIS
     Dates: start: 201112
  2. GENERIC ZYRTEC [Concomitant]
     Indication: HYPERSENSITIVITY
  3. ENALAPRIL [Concomitant]
     Indication: HYPERTENSION
  4. DICYCLOMINE [Concomitant]
     Indication: IRRITABLE BOWEL SYNDROME
  5. MAGNESIUM [Concomitant]
     Indication: CARDIAC DISORDER
  6. TOPROL XL [Concomitant]
     Indication: BLOOD PRESSURE
     Dosage: EVERY MORNING
  7. TOPROL XL [Concomitant]
     Indication: HEART RATE
  8. AMITRIPTYLINE [Concomitant]
     Indication: MUSCLE SPASMS
     Dosage: AT NIGHT
  9. TRAMADOL [Concomitant]
     Indication: PAIN
  10. PRAVASTATIN [Concomitant]
     Indication: BLOOD CHOLESTEROL INCREASED
  11. ALLERGY MEDICINE [Concomitant]
     Indication: HYPERSENSITIVITY

REACTIONS (5)
  - Paranasal sinus hypersecretion [Not Recovered/Not Resolved]
  - Dizziness [Not Recovered/Not Resolved]
  - Dizziness [Not Recovered/Not Resolved]
  - Tremor [Not Recovered/Not Resolved]
  - Chills [Not Recovered/Not Resolved]
